FAERS Safety Report 24675619 (Version 2)
Quarter: 2024Q4

REPORT INFORMATION
  Report Type: Spontaneous
  Country: US (occurrence: US)
  Receive Date: 20241128
  Receipt Date: 20241204
  Transmission Date: 20250115
  Serious: Yes (Other)
  Sender: PFIZER
  Company Number: US-MLMSERVICE-20241118-PI261283-00200-1

PATIENT
  Age: 63 Year
  Sex: Male
  Weight: 82.33 kg

DRUGS (13)
  1. LEVOTHYROXINE SODIUM [Interacting]
     Active Substance: LEVOTHYROXINE SODIUM
     Indication: Hypothyroidism
     Dosage: 150 UG, 1X/DAY
     Route: 048
  2. LEVOTHYROXINE SODIUM [Interacting]
     Active Substance: LEVOTHYROXINE SODIUM
     Dosage: IN THE MORNING (EMPTY STOMACH)-THE PATIENT REPORTED TAKING LEVOTHYROXINE DAILY AT 4 AM WITH WATER
     Route: 048
  3. SEVELAMER [Interacting]
     Active Substance: SEVELAMER
     Dosage: 2400 MG, 3X/DAY
  4. OXCARBAZEPINE [Concomitant]
     Active Substance: OXCARBAZEPINE
     Dosage: 600 MG, 2X/DAY
  5. OXYCODONE [Concomitant]
     Active Substance: OXYCODONE
     Dosage: 5 MG, EVERY 4 HRS, AS NEEDED
  6. ALBUTEROL [Concomitant]
     Active Substance: ALBUTEROL
     Dosage: UNK, 4X/DAY, AS NEEDED
  7. ATORVASTATIN [Concomitant]
     Active Substance: ATORVASTATIN
     Dosage: 40 MG, 1X/DAY
  8. CALCITRIOL [Concomitant]
     Active Substance: CALCITRIOL
     Dosage: 1 UG, THREE TIMES PER WEEK
  9. CARVEDILOL [Concomitant]
     Active Substance: CARVEDILOL
     Dosage: 25 MG, 2X/DAY, INCREASE IN CARVEDILOL DOSE TO 25 MG TWICE PER DAY
  10. LISINOPRIL [Concomitant]
     Active Substance: LISINOPRIL
     Dosage: 20 MG, 1X/DAY
  11. NIFEDIPINE [Concomitant]
     Active Substance: NIFEDIPINE
     Dosage: 90 MG, 1X/DAY
  12. OLODATEROL HYDROCHLORIDE\TIOTROPIUM BROMIDE MONOHYDRATE [Concomitant]
     Active Substance: OLODATEROL HYDROCHLORIDE\TIOTROPIUM BROMIDE MONOHYDRATE
     Dosage: 2 PUFFS DAILY, AS NEEDED
  13. ONDANSETRON [Concomitant]
     Active Substance: ONDANSETRON
     Dosage: 2 MG, 1X/DAY, AS NEEDED

REACTIONS (3)
  - Drug interaction [Unknown]
  - Malabsorption [Unknown]
  - Blood thyroid stimulating hormone increased [Unknown]
